FAERS Safety Report 5656691-0 (Version None)
Quarter: 2008Q1

REPORT INFORMATION
  Report Type: 
  Country: None (occurrence: None)
  Receive Date: 20080310
  Receipt Date: 20080305
  Transmission Date: 20080703
  Serious: Yes (Death)
  Sender: FDA-Public Use
  Company Number: AT-JNJFOC-20080301560

PATIENT
  Age: 82 Year
  Sex: Male
  Weight: 81 kg

DRUGS (6)
  1. REOPRO [Suspect]
     Route: 042
  2. REOPRO [Suspect]
     Indication: ACUTE MYOCARDIAL INFARCTION
     Route: 042
  3. LOVENOX [Concomitant]
  4. SIMDAX [Concomitant]
  5. PLAVIX [Concomitant]
  6. ARTERINAL [Concomitant]

REACTIONS (1)
  - SUBARACHNOID HAEMORRHAGE [None]
